FAERS Safety Report 9604322 (Version 1)
Quarter: 2013Q4

REPORT INFORMATION
  Report Type: Spontaneous
  Country: FR (occurrence: FR)
  Receive Date: 20131008
  Receipt Date: 20131008
  Transmission Date: 20140711
  Serious: Yes (Other)
  Sender: FDA-Public Use
  Company Number: FR-AMGEN-FRASP2013069241

PATIENT
  Age: 40 Year
  Sex: Female

DRUGS (1)
  1. PROLIA [Suspect]
     Indication: PRODUCT USED FOR UNKNOWN INDICATION
     Dosage: UNK
     Route: 065

REACTIONS (7)
  - Ventricular extrasystoles [Unknown]
  - Depression [Unknown]
  - Stress [Unknown]
  - Muscle fatigue [Unknown]
  - Myalgia [Unknown]
  - Fatigue [Unknown]
  - Pain in extremity [Unknown]
